FAERS Safety Report 18325179 (Version 1)
Quarter: 2020Q3

REPORT INFORMATION
  Report Type: Spontaneous
  Country: US (occurrence: FR)
  Receive Date: 20200929
  Receipt Date: 20200929
  Transmission Date: 20201103
  Serious: Yes (Other)
  Sender: FDA-Public Use
  Company Number: NL-PFIZER INC-2020372366

PATIENT
  Age: 46 Year
  Sex: Female

DRUGS (3)
  1. CYPROTERONE ACETATE [Suspect]
     Active Substance: CYPROTERONE ACETATE
     Indication: ANDROGENETIC ALOPECIA
     Dosage: 50 MG, 1X/DAY
     Route: 048
  2. ESTRADIOL. [Suspect]
     Active Substance: ESTRADIOL
     Indication: HORMONE THERAPY
     Dosage: UNK
  3. CYPROTERONE [Suspect]
     Active Substance: CYPROTERONE
     Indication: ANDROGENETIC ALOPECIA
     Dosage: UNK
     Route: 005

REACTIONS (4)
  - Product use in unapproved indication [Unknown]
  - Off label use [Unknown]
  - Meningioma [Not Recovered/Not Resolved]
  - Paraesthesia [Not Recovered/Not Resolved]
